FAERS Safety Report 23662764 (Version 2)
Quarter: 2024Q1

REPORT INFORMATION
  Report Type: Spontaneous
  Country: US (occurrence: US)
  Receive Date: 20240322
  Receipt Date: 20240324
  Transmission Date: 20240410
  Serious: Yes (Hospitalization, Other)
  Sender: FDA-Public Use
  Company Number: US-JNJFOC-20240340881

PATIENT
  Sex: Female

DRUGS (1)
  1. DARATUMUMAB [Suspect]
     Active Substance: DARATUMUMAB
     Indication: Product used for unknown indication
     Route: 065

REACTIONS (11)
  - Hospitalisation [Unknown]
  - Neuropathy peripheral [Unknown]
  - Foot fracture [Recovered/Resolved]
  - Drug ineffective [Unknown]
  - Oral pain [Unknown]
  - Pyrexia [Recovered/Resolved]
  - Lip dry [Unknown]
  - Onychoclasis [Unknown]
  - Pain in extremity [Unknown]
  - Peripheral swelling [Unknown]
  - Fatigue [Unknown]
